FAERS Safety Report 8326455-8 (Version None)
Quarter: 2012Q2

REPORT INFORMATION
  Report Type: 
  Country: None (occurrence: None)
  Receive Date: 20120501
  Receipt Date: 20090710
  Transmission Date: 20120825
  Serious: No
  Sender: FDA-Public Use
  Company Number: US-TEVA-2009008399

PATIENT
  Sex: Male

DRUGS (12)
  1. NUVIGIL [Suspect]
     Indication: GAIT DISTURBANCE
     Dosage: 75 MILLIGRAM;
     Route: 048
     Dates: start: 20090626
  2. AMLODIPINE BESYLATE [Concomitant]
     Indication: HYPERTENSION
     Dates: start: 20080101
  3. GABAPENTIN [Concomitant]
     Indication: PAIN
     Dates: start: 19990101
  4. CINNAMON [Concomitant]
     Dates: start: 20060101
  5. PRIMIDONE [Concomitant]
     Indication: TREMOR
     Dates: start: 20030101
  6. ASPIRIN [Concomitant]
  7. FUROSEMIDE [Concomitant]
     Indication: JOINT SWELLING
     Dates: start: 20000101
  8. FLAXSEED [Concomitant]
  9. METOPROLOL TARTRATE [Concomitant]
     Indication: HYPERTENSION
     Dates: start: 20080101
  10. COD LIVER OIL [Concomitant]
  11. HUMALOG [Concomitant]
     Indication: TYPE 1 DIABETES MELLITUS
     Dates: start: 19990101
  12. LISINOPRIL [Concomitant]
     Indication: HYPERTENSION
     Dates: start: 20030101

REACTIONS (2)
  - EUPHORIC MOOD [None]
  - DRUG INEFFECTIVE FOR UNAPPROVED INDICATION [None]
